FAERS Safety Report 7148438-6 (Version None)
Quarter: 2010Q4

REPORT INFORMATION
  Report Type: 
  Country: None (occurrence: None)
  Receive Date: 20101126
  Receipt Date: 20101116
  Transmission Date: 20110411
  Serious: Yes (Hospitalization, Other)
  Sender: FDA-Public Use
  Company Number: 022144

PATIENT
  Age: 26 Year
  Sex: Female

DRUGS (4)
  1. VIMPAT [Suspect]
     Dosage: (200 MG, 200 MG) ; (100 MG, 100 MG)
  2. OXCARBAZEPINE [Suspect]
     Dosage: (DOSE REDUCED)
  3. VALPROATE SODIUM [Concomitant]
  4. LAMOTRIGINE [Concomitant]

REACTIONS (4)
  - ELECTROENCEPHALOGRAM ABNORMAL [None]
  - FALL [None]
  - FRACTURE [None]
  - PSYCHOTIC DISORDER [None]
